FAERS Safety Report 6847516-6 (Version None)
Quarter: 2010Q3

REPORT INFORMATION
  Report Type: 
  Country: None (occurrence: None)
  Receive Date: 20100716
  Receipt Date: 20100706
  Transmission Date: 20110219
  Serious: Yes (Other)
  Sender: FDA-Public Use
  Company Number: US-PFIZER INC-2010084552

PATIENT
  Age: 67 Year
  Sex: Male

DRUGS (1)
  1. GLIPIZIDE [Suspect]
     Dosage: 5 MG ONCE DAILY AND ALSO 2.5 MG ONCE DAILY

REACTIONS (1)
  - PANCREATIC CARCINOMA [None]
